FAERS Safety Report 4488699-5 (Version None)
Quarter: 2004Q4

REPORT INFORMATION
  Report Type: 
  Country: None (occurrence: None)
  Receive Date: 20041025
  Receipt Date: 20041013
  Transmission Date: 20050328
  Serious: Yes (Hospitalization)
  Sender: FDA-Public Use
  Company Number: 200412867GDS

PATIENT
  Age: 59 Year
  Sex: Female

DRUGS (2)
  1. CIPROFLOXACIN [Suspect]
     Indication: BLADDER OPERATION
     Dosage: 500 MG, BID, ORAL
     Route: 048
     Dates: start: 20040601
  2. CIPROFLOXACIN [Suspect]
     Indication: PYREXIA
     Dosage: 500 MG, BID, ORAL
     Route: 048
     Dates: start: 20040601

REACTIONS (6)
  - ARTHRALGIA [None]
  - DIFFICULTY IN WALKING [None]
  - HAEMOLYSIS [None]
  - HEADACHE [None]
  - LYMPHADENOPATHY [None]
  - SPLENOMEGALY [None]
